FAERS Safety Report 17555519 (Version 2)
Quarter: 2020Q2

REPORT INFORMATION
  Report Type: Spontaneous
  Country: US (occurrence: US)
  Receive Date: 20200318
  Receipt Date: 20200406
  Transmission Date: 20200713
  Serious: No
  Sender: FDA-Public Use
  Company Number: US-ASTRAZENECA-2020SE29653

PATIENT
  Sex: Male

DRUGS (2)
  1. BYDUREON BCISE [Suspect]
     Active Substance: EXENATIDE
     Route: 065
  2. LANTUS [Concomitant]
     Active Substance: INSULIN GLARGINE

REACTIONS (8)
  - Weight decreased [Unknown]
  - Drug ineffective [Unknown]
  - Decreased appetite [Unknown]
  - Incorrect dose administered by device [Unknown]
  - Device issue [Unknown]
  - Injection site bruising [Unknown]
  - Wrong technique in product usage process [Unknown]
  - Device leakage [Unknown]
